FAERS Safety Report 8173046-8 (Version None)
Quarter: 2012Q1

REPORT INFORMATION
  Report Type: 
  Country: None (occurrence: None)
  Receive Date: 20120229
  Receipt Date: 20120221
  Transmission Date: 20120608
  Serious: Yes (Life-Threatening)
  Sender: FDA-Public Use
  Company Number: DE-CELGENEUS-062-50794-11091527

PATIENT
  Age: 61 Year
  Sex: Male
  Weight: 111.5 kg

DRUGS (1)
  1. VIDAZA [Suspect]
     Dosage: 156.76 MILLIGRAM
     Route: 041
     Dates: start: 20110909

REACTIONS (2)
  - PNEUMONIA [None]
  - FEBRILE NEUTROPENIA [None]
